FAERS Safety Report 6862429-1 (Version None)
Quarter: 2010Q3

REPORT INFORMATION
  Report Type: 
  Country: None (occurrence: None)
  Receive Date: 20100528
  Receipt Date: 20100217
  Transmission Date: 20110219
  Serious: Yes (Hospitalization)
  Sender: FDA-Public Use
  Company Number: CIP10000355

PATIENT
  Sex: Female

DRUGS (1)
  1. ACTONEL [Suspect]
     Dosage: 35 MG ONCE WEEKLY, ORAL
     Route: 048

REACTIONS (8)
  - ASTHENIA [None]
  - DIZZINESS [None]
  - FAECES DISCOLOURED [None]
  - FEELING HOT [None]
  - FREQUENT BOWEL MOVEMENTS [None]
  - GASTRIC HAEMORRHAGE [None]
  - GASTRIC PERFORATION [None]
  - INSOMNIA [None]
